FAERS Safety Report 7212867-2 (Version None)
Quarter: 2011Q1

REPORT INFORMATION
  Report Type: 
  Country: None (occurrence: None)
  Receive Date: 20110106
  Receipt Date: 20101224
  Transmission Date: 20110831
  Serious: Yes (Hospitalization)
  Sender: FDA-Public Use
  Company Number: PHHY2010JP88370

PATIENT
  Age: 68 Year
  Sex: Male

DRUGS (5)
  1. DEXAMETHASONE [Concomitant]
     Dosage: 0.5 MG
     Route: 048
  2. ZOMETA [Suspect]
     Indication: METASTASES TO SPINE
     Dosage: UNK
     Route: 042
     Dates: end: 20080601
  3. GLIBENCLAMIDE [Concomitant]
     Indication: DIABETES MELLITUS
     Route: 042
  4. ASPIRIN [Concomitant]
     Indication: ANGINA PECTORIS
     Route: 048
  5. METFORMIN HYDROCHLORIDE [Concomitant]
     Indication: DIABETES MELLITUS

REACTIONS (2)
  - DEVICE DISLOCATION [None]
  - OSTEONECROSIS OF JAW [None]
